FAERS Safety Report 4507165-1 (Version None)
Quarter: 2005Q1

REPORT INFORMATION
  Report Type: 
  Country: None (occurrence: None)
  Receive Date: 20041025
  Receipt Date: 20040625
  Transmission Date: 20050727
  Serious: Yes (Hospitalization)
  Sender: FDA-Public Use
  Company Number: US-JNJFOC-20040504741

PATIENT
  Age: 87 Year
  Sex: Female
  Weight: 54.4316 kg

DRUGS (9)
  1. INFLIXIMAB (INFLIXIMAB, RECOMBINANT) LYOPHILIZED POWDER [Suspect]
     Indication: RHEUMATOID ARTHRITIS
     Dosage: INTRAVENOUS
     Route: 042
     Dates: start: 20010328, end: 20031022
  2. PLAQUENIL [Concomitant]
  3. SYNTHROID [Concomitant]
  4. FOSAMAX [Concomitant]
  5. CALCIUM + D (CALCIUM) [Concomitant]
  6. CLARITIN [Concomitant]
  7. DARVOCET [Concomitant]
  8. FLONASE [Concomitant]
  9. CELEBREX [Concomitant]

REACTIONS (1)
  - ANAPHYLACTOID REACTION [None]
